FAERS Safety Report 8927602 (Version 1)
Quarter: 2012Q4

REPORT INFORMATION
  Report Type: 
  Country: BR (occurrence: BR)
  Receive Date: 20121127
  Receipt Date: 20121127
  Transmission Date: 20130627
  Serious: Yes (Death)
  Sender: FDA-Public Use
  Company Number: BR-PFIZER INC-2012127915

PATIENT
  Age: 61 Year
  Sex: Male
  Weight: 61 kg

DRUGS (3)
  1. SUTENT [Suspect]
     Indication: RENAL CANCER
     Dosage: 50 mg, 1x/day, 4 weeks on/2 weeks off
     Route: 048
     Dates: start: 20120504
  2. PARACETAMOL [Concomitant]
     Indication: PAIN
     Dosage: UNK
  3. CODEINE [Concomitant]

REACTIONS (11)
  - Death [Fatal]
  - Nausea [Unknown]
  - Aphthous stomatitis [Unknown]
  - Anhedonia [Unknown]
  - Fatigue [Unknown]
  - Mouth injury [Unknown]
  - Face injury [Unknown]
  - Odynophagia [Unknown]
  - Cough [Unknown]
  - Retching [Unknown]
  - Gastrooesophageal reflux disease [Unknown]
